FAERS Safety Report 4976311-8 (Version None)
Quarter: 2006Q2

REPORT INFORMATION
  Report Type: 
  Country: None (occurrence: None)
  Receive Date: 20060412
  Receipt Date: 20060330
  Transmission Date: 20061013
  Serious: Yes (Other)
  Sender: FDA-Public Use
  Company Number: 2006045468

PATIENT
  Age: 12 Month
  Sex: Male

DRUGS (1)
  1. PHENYTOIN SODIUM [Suspect]
     Indication: EPILEPSY
     Dosage: 100  MG (50 MG, 2 IN 1 D), ORAL
     Route: 048
     Dates: start: 20060110

REACTIONS (6)
  - ANAEMIA [None]
  - ARTHROPOD BITE [None]
  - CONVULSION [None]
  - DRUG LEVEL DECREASED [None]
  - OEDEMA [None]
  - RASH [None]
